FAERS Safety Report 6143904-4 (Version None)
Quarter: 2009Q2

REPORT INFORMATION
  Report Type: 
  Country: None (occurrence: None)
  Receive Date: 20090406
  Receipt Date: 20090326
  Transmission Date: 20091009
  Serious: Yes (Other)
  Sender: FDA-Public Use
  Company Number: PHHY2009MX10854

PATIENT
  Age: 74 Year
  Sex: Female

DRUGS (8)
  1. STALEVO 100 [Suspect]
     Indication: PARKINSON'S DISEASE
     Dosage: 4 TAB/DAY
     Dates: start: 20071201
  2. SIFROL [Concomitant]
     Dosage: 2 DF/DAY
     Route: 048
  3. FOSAMAX [Concomitant]
     Dosage: 1 DF, QW
     Route: 048
  4. SERTRALINE HCL [Concomitant]
     Dosage: 1 DF, QD
     Route: 048
  5. PENTOXIFYLLINE [Concomitant]
     Dosage: 1 DF, QD
     Route: 048
  6. ACETYLSALICYLIC ACID [Concomitant]
     Dosage: 1 DF, QD
     Route: 048
  7. FOLIC ACID [Concomitant]
  8. VITAMIN E [Concomitant]

REACTIONS (4)
  - FALL [None]
  - GAIT DISTURBANCE [None]
  - PHYSIOTHERAPY [None]
  - SPINAL DISORDER [None]
